FAERS Safety Report 7891148-8 (Version None)
Quarter: 2011Q4

REPORT INFORMATION
  Report Type: 
  Country: None (occurrence: None)
  Receive Date: 20111103
  Receipt Date: 20110729
  Transmission Date: 20120403
  Serious: No
  Sender: FDA-Public Use
  Company Number: US-AMGEN-USASP2011038819

PATIENT
  Age: 36 Year
  Sex: Female

DRUGS (1)
  1. ENBREL [Suspect]
     Indication: RHEUMATOID ARTHRITIS
     Dates: start: 20060901

REACTIONS (6)
  - LOCAL SWELLING [None]
  - CHILLS [None]
  - OEDEMA PERIPHERAL [None]
  - INJECTION SITE PRURITUS [None]
  - INJECTION SITE RASH [None]
  - SWELLING FACE [None]
